FAERS Safety Report 11053393 (Version 1)
Quarter: 2015Q2

REPORT INFORMATION
  Report Type: Spontaneous
  Country: US (occurrence: US)
  Receive Date: 20150421
  Receipt Date: 20150421
  Transmission Date: 20150821
  Serious: Yes (Other)
  Sender: FDA-Public Use
  Company Number: US-MALLINCKRODT-T201502091

PATIENT
  Sex: Female

DRUGS (4)
  1. TORADOL [Concomitant]
     Active Substance: KETOROLAC TROMETHAMINE
     Indication: CAESAREAN SECTION
     Dosage: UNK
     Dates: start: 20140822
  2. EPHEDRINE [Concomitant]
     Active Substance: EPHEDRINE
     Indication: CAESAREAN SECTION
     Dosage: UNK
     Dates: start: 20140822
  3. ZOFRAN [Concomitant]
     Active Substance: ONDANSETRON HYDROCHLORIDE
     Indication: CAESAREAN SECTION
     Dosage: UNK
     Dates: start: 20140822
  4. OFIRMEV [Suspect]
     Active Substance: ACETAMINOPHEN
     Indication: CAESAREAN SECTION
     Dosage: 1 GRAM, SINGLE
     Route: 042
     Dates: start: 20140822, end: 20140822

REACTIONS (2)
  - Body temperature decreased [Recovered/Resolved]
  - Urine output decreased [Recovered/Resolved]
